FAERS Safety Report 10247568 (Version 1)
Quarter: 2014Q2

REPORT INFORMATION
  Report Type: Spontaneous
  Country: NO (occurrence: None)
  Receive Date: 20140617
  Receipt Date: 20140617
  Transmission Date: 20141212
  Serious: Yes (Other)
  Sender: FDA-Public Use
  Company Number: FK201402300

PATIENT
  Age: 60 Year
  Sex: Female

DRUGS (11)
  1. CYTARABINE (MANUFACTURER UNKNOWN) (CYTARABINE) (CYTARABINE) [Suspect]
     Indication: PRECURSOR B-LYMPHOBLASTIC LYMPHOMA
     Route: 042
  2. DAUNORUBICIN (DAUNORUBICIN) (DAUNORUBICIN) [Suspect]
     Indication: PRECURSOR B-LYMPHOBLASTIC LYMPHOMA
     Route: 042
  3. G-CSF [Suspect]
     Indication: PERIPHERAL BLOOD STEM CELL APHERESIS
  4. DOXORUBICIN (DOXORUBICIN) (DOXORUBICIN) [Suspect]
     Indication: PRECURSOR B-LYMPHOBLASTIC LYMPHOMA
     Route: 042
  5. CYCLOPHOSPHAMIDE (CYCLOPHOSPHAMIDE) (CYCLOPHOSPHAMIDE) [Suspect]
     Indication: PRECURSOR B-LYMPHOBLASTIC LYMPHOMA
     Route: 042
  6. PREDNISONE (PREDNISONE) (PREDNISONE) [Suspect]
     Indication: PRECURSOR B-LYMPHOBLASTIC LYMPHOMA
     Route: 037
  7. VINCRISTINE SULFATE (VINCRISTINE SULFATE) (VINCRISTINE SULFATE) [Suspect]
     Indication: PRECURSOR B-LYMPHOBLASTIC LYMPHOMA
     Route: 042
  8. METHOTREXATE (METHOTREXATE) (METHOTREXATE) [Suspect]
     Indication: PRECURSOR B-LYMPHOBLASTIC LYMPHOMA
     Route: 037
  9. L-ASPARAGINASE (ASPARAGINASE) (ASPARAGINASE) [Suspect]
     Indication: PRECURSOR B-LYMPHOBLASTIC LYMPHOMA
     Route: 042
  10. THIOGUANINE [Suspect]
     Indication: PRECURSOR B-LYMPHOBLASTIC LYMPHOMA
     Route: 042
  11. MERCAPTOPURINE (MERCAPTOPURINE) (MERCAPTOPURINE) [Suspect]
     Indication: PRECURSOR B-LYMPHOBLASTIC LYMPHOMA
     Route: 048

REACTIONS (2)
  - Febrile neutropenia [None]
  - Haematotoxicity [None]
